FAERS Safety Report 7744375-4 (Version None)
Quarter: 2011Q3

REPORT INFORMATION
  Report Type: 
  Country: None (occurrence: None)
  Receive Date: 20110912
  Receipt Date: 20110907
  Transmission Date: 20111222
  Serious: Yes (Other)
  Sender: FDA-Public Use
  Company Number: FI-PFIZER INC-2011174200

PATIENT
  Age: 44 Year
  Sex: Male
  Weight: 90 kg

DRUGS (9)
  1. BURANA [Concomitant]
     Indication: PAIN
     Dosage: UNK
  2. EFFEXOR [Concomitant]
     Indication: ANXIETY
     Dosage: 150 MG, 2X/DAY
     Route: 048
     Dates: start: 20101020
  3. TRAMADOL HYDROCHLORIDE [Concomitant]
     Indication: PAIN
     Dosage: UNK
  4. QUETIAPINE FUMARATE [Concomitant]
     Dosage: 100 MG, OCCASIONALLY
     Dates: start: 20110101, end: 20110101
  5. LYRICA [Suspect]
     Indication: GENERALISED ANXIETY DISORDER
     Dosage: 150 MG, 1X/DAY
     Route: 048
     Dates: start: 20110721, end: 20110726
  6. QUETIAPINE FUMARATE [Concomitant]
     Dosage: 50 MG, UNK
     Dates: start: 20110101, end: 20110101
  7. QUETIAPINE FUMARATE [Concomitant]
     Dosage: 150 MG, UNK
     Dates: start: 20110101
  8. OXAMIN [Concomitant]
     Indication: ANXIETY
     Dosage: 50 MG, 1X/DAY
     Route: 048
     Dates: start: 20101121
  9. QUETIAPINE FUMARATE [Concomitant]
     Dosage: 200 MG, IN THE EVENINGS
     Dates: start: 20110101, end: 20110101

REACTIONS (2)
  - RASH PAPULOSQUAMOUS [None]
  - ERYTHEMA MULTIFORME [None]
